FAERS Safety Report 4578431-9 (Version None)
Quarter: 2005Q1

REPORT INFORMATION
  Report Type: 
  Country: None (occurrence: None)
  Receive Date: 20050204
  Receipt Date: 20050204
  Transmission Date: 20050727
  Serious: Yes (Hospitalization)
  Sender: FDA-Public Use
  Company Number: None

PATIENT
  Age: 9 Year
  Sex: Male

DRUGS (6)
  1. IFOSFAMIDE [Suspect]
     Indication: EWING'S SARCOMA
     Dosage: 1652 MG IV
     Route: 042
     Dates: start: 20020812
  2. ETOPOSIDE [Suspect]
     Dosage: 92 MG IV
     Route: 042
     Dates: start: 20040812
  3. VINCRISTINE [Concomitant]
  4. CYCLOPHOSPHAMIDE [Concomitant]
  5. MESNA [Concomitant]
  6. NEUPOGEN [Concomitant]

REACTIONS (10)
  - BLOOD ALBUMIN DECREASED [None]
  - CLOSTRIDIAL INFECTION [None]
  - DIARRHOEA [None]
  - HEART RATE INCREASED [None]
  - HYPERTENSION [None]
  - HYPOTENSION [None]
  - NEUTROPENIA [None]
  - PYREXIA [None]
  - RESPIRATORY RATE INCREASED [None]
  - VOMITING [None]
